FAERS Safety Report 7628879-0 (Version None)
Quarter: 2011Q3

REPORT INFORMATION
  Report Type: 
  Country: None (occurrence: None)
  Receive Date: 20110722
  Receipt Date: 20110718
  Transmission Date: 20111222
  Serious: Yes (Life-Threatening, Hospitalization)
  Sender: FDA-Public Use
  Company Number: FR-CELGENEUS-056-21880-11071943

PATIENT
  Sex: Male
  Weight: 82 kg

DRUGS (1)
  1. REVLIMID [Suspect]
     Indication: NON-HODGKIN'S LYMPHOMA
     Dosage: 15 MILLIGRAM
     Route: 048
     Dates: start: 20110401, end: 20110415

REACTIONS (4)
  - RASH GENERALISED [None]
  - PANCYTOPENIA [None]
  - SEPTIC SHOCK [None]
  - NECROTISING FASCIITIS [None]
